FAERS Safety Report 22247665 (Version 1)
Quarter: 2023Q2

REPORT INFORMATION
  Report Type: Spontaneous
  Country: US (occurrence: US)
  Receive Date: 20230425
  Receipt Date: 20230425
  Transmission Date: 20230721
  Serious: No
  Sender: FDA-Public Use
  Company Number: US-Melinta Therapeutics, LLC-US-MLNT-22-00276

PATIENT
  Sex: Female

DRUGS (3)
  1. TOPROL XL [Suspect]
     Active Substance: METOPROLOL SUCCINATE
     Indication: Product used for unknown indication
     Dosage: 1 AND A HALF PILLS A DAY, SO HER DOSAGE IS AROUND 37MG
     Route: 048
  2. BENICAR [Concomitant]
     Active Substance: OLMESARTAN MEDOXOMIL
     Indication: Product used for unknown indication
     Dosage: NOT PROVIDED.
     Route: 065
  3. METOPROLOL ACCORD [Concomitant]
     Indication: Product used for unknown indication
     Dosage: NOT PROVIDED.
     Route: 065

REACTIONS (4)
  - Blood pressure fluctuation [Recovering/Resolving]
  - Heart rate abnormal [Recovering/Resolving]
  - Syncope [Unknown]
  - Product storage error [Unknown]
